FAERS Safety Report 5270396-X (Version None)
Quarter: 2007Q1

REPORT INFORMATION
  Report Type: 
  Country: None (occurrence: None)
  Receive Date: 20070320
  Receipt Date: 20070308
  Transmission Date: 20070707
  Serious: Yes (Hospitalization)
  Sender: FDA-Public Use
  Company Number: FR-PFIZER INC-2007018404

PATIENT
  Age: 79 Year
  Sex: Male
  Weight: 65 kg

DRUGS (19)
  1. LYRICA [Suspect]
     Indication: NEURALGIA
     Route: 048
     Dates: start: 20061017, end: 20061027
  2. BACTRIM [Suspect]
     Dosage: TEXT:1 DF; 2 DF
     Route: 048
     Dates: start: 20061007, end: 20061025
  3. METOCLOPRAMIDE [Concomitant]
     Route: 048
     Dates: start: 20061006, end: 20061017
  4. NEURONTIN [Concomitant]
     Route: 048
     Dates: start: 20061011, end: 20061017
  5. OXYCONTIN [Concomitant]
     Dates: start: 20061002
  6. OXYNORM [Concomitant]
     Dates: start: 20061005
  7. FORLAX [Concomitant]
     Dates: start: 20061002
  8. SODIUM POLYSTYRENE SULFONATE [Concomitant]
     Dates: start: 20061021
  9. CLONAZEPAM [Concomitant]
     Dates: start: 20061018
  10. DOMPERIDONE [Concomitant]
  11. HEPTAMINOL [Concomitant]
     Dates: start: 20061008
  12. ANAFRANIL [Concomitant]
     Route: 048
     Dates: start: 20061005
  13. ARTISIAL (FRANCE) [Concomitant]
     Dates: start: 20060828
  14. ACETAMINOPHEN [Concomitant]
     Dates: start: 20061004
  15. ROCEPHIN [Concomitant]
     Dates: start: 20061004, end: 20061013
  16. GRANOCYTE [Concomitant]
     Route: 058
     Dates: start: 20061023, end: 20061025
  17. ZOPHREN [Concomitant]
     Dates: start: 20061007, end: 20061109
  18. CISPLATIN [Concomitant]
     Dates: start: 20061002, end: 20061007
  19. METRONIDAZOLE [Concomitant]
     Dates: start: 20061004, end: 20061113

REACTIONS (1)
  - RASH ERYTHEMATOUS [None]
